FAERS Safety Report 6437171-1 (Version None)
Quarter: 2009Q4

REPORT INFORMATION
  Report Type: 
  Country: None (occurrence: None)
  Receive Date: 20091112
  Receipt Date: 20091103
  Transmission Date: 20100525
  Serious: Yes (Other)
  Sender: FDA-Public Use
  Company Number: US-JNJCH-2009028945

PATIENT
  Age: 14 Year
  Sex: Male
  Weight: 63.5 kg

DRUGS (1)
  1. SUDAFED S.A. [Suspect]
     Indication: DRUG USE FOR UNKNOWN INDICATION
     Dosage: TEXT:12 TABLETS AT ONCE
     Route: 048

REACTIONS (3)
  - ABNORMAL BEHAVIOUR [None]
  - FEELING JITTERY [None]
  - OVERDOSE [None]
